FAERS Safety Report 9257953 (Version 2)
Quarter: 2013Q3

REPORT INFORMATION
  Report Type: Report from Study
  Country: CO (occurrence: CO)
  Receive Date: 20130426
  Receipt Date: 20130724
  Transmission Date: 20140515
  Serious: Yes (Other)
  Sender: FDA-Public Use
  Company Number: CO-ROCHE-1218147

PATIENT
  Age: 37 Year
  Sex: Female

DRUGS (2)
  1. MIRCERA [Suspect]
     Indication: ANAEMIA
     Route: 058
     Dates: start: 20091125
  2. MIRCERA [Suspect]
     Indication: RENAL FAILURE CHRONIC

REACTIONS (2)
  - Kidney transplant rejection [Unknown]
  - Hypercreatinaemia [Unknown]
